FAERS Safety Report 4693713-8 (Version None)
Quarter: 2005Q2

REPORT INFORMATION
  Report Type: 
  Country: None (occurrence: None)
  Receive Date: 20050615
  Receipt Date: 20050601
  Transmission Date: 20051028
  Serious: Yes (Other)
  Sender: FDA-Public Use
  Company Number: USA050598046

PATIENT
  Age: 79 Year
  Sex: Female

DRUGS (7)
  1. FORTEO [Suspect]
     Indication: OSTEOPOROSIS
     Dosage: 20 UG DAY
     Dates: start: 20041103, end: 20050127
  2. APO-METOPROLOL (METOPROLOL TARTRATE) [Concomitant]
  3. LASIX [Concomitant]
  4. COZAAR (LASARTAN POTASSIUM) [Concomitant]
  5. COUMADIN [Concomitant]
  6. MULTI-VITAMIN [Concomitant]
  7. CITRACAL WITH VITAMIN D [Concomitant]

REACTIONS (2)
  - ATRIAL FIBRILLATION [None]
  - HYPERCALCAEMIA [None]
